FAERS Safety Report 19083052 (Version 1)
Quarter: 2021Q2

REPORT INFORMATION
  Report Type: Spontaneous
  Country: US (occurrence: US)
  Receive Date: 20210401
  Receipt Date: 20210401
  Transmission Date: 20210717
  Serious: Yes (Other)
  Sender: FDA-Public Use
  Company Number: None

PATIENT
  Age: 54 Year
  Sex: Male

DRUGS (1)
  1. VYEPTI [Suspect]
     Active Substance: EPTINEZUMAB-JJMR
     Indication: MIGRAINE
     Dosage: ?          OTHER FREQUENCY:EVERY 3 MTHS;?
     Route: 042
     Dates: start: 20210329, end: 20210401

REACTIONS (4)
  - Rash [None]
  - Myocardial infarction [None]
  - Tachycardia [None]
  - Dyspnoea [None]

NARRATIVE: CASE EVENT DATE: 20210329
